FAERS Safety Report 17880776 (Version 2)
Quarter: 2021Q2

REPORT INFORMATION
  Report Type: Spontaneous
  Country: US (occurrence: US)
  Receive Date: 20200610
  Receipt Date: 20210510
  Transmission Date: 20210717
  Serious: Yes (Hospitalization)
  Sender: FDA-Public Use
  Company Number: US-MYLANLABS-2020M1055191

PATIENT
  Age: 67 Year
  Sex: Female
  Weight: 117 kg

DRUGS (10)
  1. CLOBAZAM. [Suspect]
     Active Substance: CLOBAZAM
     Indication: STATUS EPILEPTICUS
     Dosage: 10 MILLIGRAM, BID
     Route: 048
  2. CLOBAZAM. [Suspect]
     Active Substance: CLOBAZAM
     Dosage: UNK, MAINTAINED WITH LOW DOSAGE
     Route: 048
  3. FOSPHENYTOIN [Suspect]
     Active Substance: FOSPHENYTOIN
     Indication: STATUS EPILEPTICUS
     Dosage: 20 MG/KG (AS LOADING DOSE)
     Route: 042
  4. LEVETIRACETAM. [Suspect]
     Active Substance: LEVETIRACETAM
     Indication: STATUS EPILEPTICUS
     Dosage: 1000 MILLIGRAM, ONCE, RECEIVED ONCE
     Route: 042
  5. LACOSAMIDE. [Suspect]
     Active Substance: LACOSAMIDE
     Dosage: 150 MILLIGRAM, BID, AS MAINTENANCE DOSE
     Route: 042
  6. LACOSAMIDE. [Suspect]
     Active Substance: LACOSAMIDE
     Indication: STATUS EPILEPTICUS
     Dosage: 300 MILLIGRAM (LOADING DOSE)
     Route: 042
  7. LORAZEPAM. [Suspect]
     Active Substance: LORAZEPAM
     Indication: STATUS EPILEPTICUS
     Dosage: 4 MILLIGRAM, AS ACCUMULATIVE DOSE: 0.5, 0.5, 1.0 AND 2.0MG
     Route: 042
  8. VALPROIC ACID. [Suspect]
     Active Substance: VALPROIC ACID
     Indication: STATUS EPILEPTICUS
     Dosage: 25MG/KG,AS LOADING DOSE
     Route: 042
  9. FOSPHENYTOIN [Suspect]
     Active Substance: FOSPHENYTOIN
     Dosage: 150 MILLIGRAM, Q8H, AS MAINTENANCE DOSE
     Route: 042
  10. VALPROIC ACID. [Suspect]
     Active Substance: VALPROIC ACID
     Dosage: 500 MILLIGRAM, BID,AS MAINTENANCE DOSE
     Route: 042

REACTIONS (1)
  - Drug ineffective [Unknown]
